FAERS Safety Report 7524921-6 (Version None)
Quarter: 2011Q2

REPORT INFORMATION
  Report Type: 
  Country: None (occurrence: None)
  Receive Date: 20110606
  Receipt Date: 20110520
  Transmission Date: 20111010
  Serious: No
  Sender: FDA-Public Use
  Company Number: US-B.I. PHARMACEUTICALS,INC./RIDGEFIELD-2011-BP-13581BP

PATIENT
  Age: 75 Year
  Sex: Female

DRUGS (12)
  1. LEVOTHYROXINE SODIUM [Concomitant]
     Indication: HYPOTHYROIDISM
  2. VENLAFAXINE [Concomitant]
     Indication: DEPRESSION
  3. DIGOXIN [Concomitant]
     Indication: CARDIAC DISORDER
  4. DICLOFENAC SODIUM [Concomitant]
     Indication: ARTHRITIS
  5. METOPROLOL TARTRATE [Concomitant]
     Indication: CARDIAC DISORDER
  6. XANAX [Concomitant]
     Indication: ANXIETY
  7. MISOPROSTOL [Concomitant]
     Indication: ARTHRITIS
  8. DILTIAZEM [Concomitant]
     Indication: CARDIAC DISORDER
  9. PRAMIPEXOLE DIHYDROCHLORIDE [Concomitant]
     Indication: RESTLESS LEGS SYNDROME
  10. BUSPIRONE HCL [Concomitant]
     Indication: ANXIETY
  11. TRIAMTERENE [Concomitant]
     Indication: CARDIAC DISORDER
  12. PRADAXA [Suspect]
     Indication: ATRIAL FIBRILLATION
     Dosage: 300 MG
     Route: 048
     Dates: start: 20101101, end: 20110401

REACTIONS (2)
  - MEDICATION RESIDUE [None]
  - HYPERCOAGULATION [None]
